FAERS Safety Report 21575171 (Version 6)
Quarter: 2023Q4

REPORT INFORMATION
  Report Type: Report from Study
  Country: US (occurrence: US)
  Receive Date: 20221110
  Receipt Date: 20231207
  Transmission Date: 20240110
  Serious: Yes (Hospitalization, Other)
  Sender: FDA-Public Use
  Company Number: US-ABBVIE-4191486

PATIENT
  Sex: Female

DRUGS (49)
  1. VENCLEXTA [Suspect]
     Active Substance: VENETOCLAX
     Indication: Acute myeloid leukaemia
     Dosage: FORM STRENGTH: 100 MG, TAKE 1 TABLET BY MOUTH ONCE DAILY LINE OF THERAPY THIRD OR GREATER
     Route: 048
     Dates: start: 2018, end: 2018
  2. VENCLEXTA [Suspect]
     Active Substance: VENETOCLAX
     Indication: Acute myeloid leukaemia
     Dosage: FORM STRENGTH: 100 MG, TAKE 4 TABLET(S) BY MOUTH EVERY DAY, TAKE 4-100MG TABLETS (400MG TOTAL) BY...
     Route: 048
     Dates: start: 2018, end: 202111
  3. VENCLEXTA [Suspect]
     Active Substance: VENETOCLAX
     Indication: Acute myeloid leukaemia
     Dosage: DAY 1 THROUGH 7: 20 MG BY MOUTH ONCE A DAY
     Route: 048
  4. VENCLEXTA [Suspect]
     Active Substance: VENETOCLAX
     Indication: Acute myeloid leukaemia
     Dosage: DAY 8 THROUGH 14: 50 MG BY MOUTH ONCE A DAY
     Route: 048
  5. VENCLEXTA [Suspect]
     Active Substance: VENETOCLAX
     Indication: Acute myeloid leukaemia
     Dosage: DAYS 15 THROUGH 21: 100 MG BY MOUTH ONCE A DAY?HOLD UNTIL INSTRUCTED TO RESUME PER CANCER CENTER ...
     Route: 048
  6. VENCLEXTA [Suspect]
     Active Substance: VENETOCLAX
     Indication: Acute myeloid leukaemia
     Dosage: DAYS 22 THROUGH 28: 200 MG BY MOUTH ONCE A DAY
     Route: 048
  7. ZITHROMAX [Concomitant]
     Active Substance: AZITHROMYCIN DIHYDRATE
     Indication: Product used for unknown indication
     Dosage: TAKE 500 MG (2 TAB) ON DAY 1?FORM STRENGTH WAS 250 MG
     Route: 048
  8. ZITHROMAX [Concomitant]
     Active Substance: AZITHROMYCIN DIHYDRATE
     Indication: Product used for unknown indication
     Dosage: TAKE 250 MG (1 TAB) ON DAYS 2-5?FORM STRENGTH WAS 250 MG
     Route: 048
  9. CALCIUM\VITAMIN D [Concomitant]
     Active Substance: CALCIUM\VITAMIN D
     Indication: Product used for unknown indication
     Route: 048
  10. MORPHINE SULFATE [Concomitant]
     Active Substance: MORPHINE SULFATE
     Indication: Pain
     Dosage: STRENGTH- 30 MILLIGRAM
     Route: 048
  11. DECADRON [Concomitant]
     Active Substance: DEXAMETHASONE
     Indication: Product used for unknown indication
     Dosage: 0.5 MG/5 ML, SWISH AND HOLD IN MOUTH FOR 1 MINUTE, THEN SPIT OUT. RINSE WITH WATER AFTERWARDS. ST...
     Route: 048
  12. ZOVIRAX [Concomitant]
     Active Substance: ACYCLOVIR
     Indication: Antiviral prophylaxis
     Dosage: STRENGTH-400 MG?TAKE 1 TABLET (400 MG TOTAL) BY MOUTH TWICE DAILY
     Route: 048
  13. RESTASIS [Concomitant]
     Active Substance: CYCLOSPORINE
     Indication: Product used for unknown indication
     Dosage: 0.05 % DROPPERETTE, INSTILL 1 DROP INTO BOTH EYES
     Route: 047
  14. ARISTOCORT [Concomitant]
     Active Substance: TRIAMCINOLONE DIACETATE
     Indication: Product used for unknown indication
     Dosage: 0.1 %  CREAM?APPLY TOPICALLY TWICE DAILY
     Route: 061
  15. NEXIUM [Concomitant]
     Active Substance: ESOMEPRAZOLE MAGNESIUM
     Indication: Product used for unknown indication
     Dosage: ONCE A DAY FOR 90 DAYS
     Route: 048
  16. ELIQUIS [Concomitant]
     Active Substance: APIXABAN
     Indication: Deep vein thrombosis
     Route: 048
  17. DIFLUCAN [Concomitant]
     Active Substance: FLUCONAZOLE
     Indication: Product used for unknown indication
     Dosage: STRENGTH- 200 MILLIGRAM
     Route: 048
  18. MS CONTIN [Concomitant]
     Active Substance: MORPHINE SULFATE
     Indication: Product used for unknown indication
     Dosage: 30 MG ORAL TABLET SUSTAINED RELEASE TAKE 1 TAB (30 MG TOTAL) BY MOUTH EVERY 12? HOURS
     Route: 048
  19. MS CONTIN [Concomitant]
     Active Substance: MORPHINE SULFATE
     Indication: Product used for unknown indication
     Dosage: FORM STRENGTH 15 MG?TAKE 1 TAB (15 MG TOTAL) BY MOUTH EVERY 12 HOURS
     Route: 048
  20. ZOFRAN [Concomitant]
     Active Substance: ONDANSETRON HYDROCHLORIDE
     Indication: Vomiting
     Dosage: STRENGTH-8 MILLIGRAM?PLACE 1 TABLET (8 MG TOTAL) UNDER THE TONGUE EVERY 8 HOURS AS NEEDED?RAPID D...
     Route: 048
  21. TOPAMAX [Concomitant]
     Active Substance: TOPIRAMATE
     Indication: Product used for unknown indication
     Dosage: STRENGTH- 100 MILLIGRAM?TAKE 100 MG BY MOUTH ONCE A DAY
     Route: 048
  22. THERATEARS [Concomitant]
     Active Substance: CARBOXYMETHYLCELLULOSE SODIUM
     Indication: Product used for unknown indication
     Dosage: 0.25 % DROPS, PT IS USING QHS PRN OU?1-2 DROPS INTO BOTH EYES
     Route: 047
  23. ATIVAN [Concomitant]
     Active Substance: LORAZEPAM
     Indication: Vomiting
     Dosage: FORM STRENGTH 1MG
     Route: 048
  24. TYLENOL [Concomitant]
     Active Substance: ACETAMINOPHEN
     Indication: Pain
     Dosage: STRENGTH-325 MG, TAKE 2 TABLETS (650 MG TOTAL) BY MOUTH EVERY 4 HOURS AS NEEDED
     Route: 048
  25. VITAMIN C [Concomitant]
     Active Substance: ASCORBIC ACID
     Indication: Vitamin C deficiency
     Dosage: STRENGTH-1000 MG, TAKE 1 TABLET (1,000 MG TOTAL) BY MOUTH ONCE A DAY
     Route: 048
  26. DULCOLAX (BISACODYL) [Concomitant]
     Active Substance: BISACODYL
     Indication: Constipation
     Dosage: 5 MG, DELAYED RELEASE (E.C.),TAKE 1 TABLET (5 MG TOTAL) BY MOUTH EVERY 24 HOURS AS NEEDED, NOT TA...
     Route: 048
     Dates: end: 20231022
  27. ENTOCORT EC [Concomitant]
     Active Substance: BUDESONIDE
     Indication: Product used for unknown indication
     Dosage: DELAYED + EXT.RELEASE, TAKE 1 CAPSULE (3 MG TOTAL) BY MOUTH TWICE DAILY, STRENGTH-3 MG
     Route: 048
  28. WELLBUTRIN SR [Concomitant]
     Active Substance: BUPROPION HYDROCHLORIDE
     Indication: Major depression
     Dosage: 150 MG, TABLET SUSTAINED-RELEASE 12 H,TAKE 1 TABLET (150 MG TOTAL) BY MOUTH TWICE DAILY MORNING A...
     Route: 048
  29. CALCIUM CARBONATE [Concomitant]
     Active Substance: CALCIUM CARBONATE
     Indication: Mineral supplementation
     Dosage: 1 TABLET
     Route: 048
  30. VITAMIN D3 [Concomitant]
     Active Substance: CHOLECALCIFEROL
     Indication: Vitamin D deficiency
     Dosage: TAKE 1 TABLET (400 IJNITS TOTAL) BY MOUTH ONCE A DAY
     Route: 048
  31. TEMOVATE [Concomitant]
     Active Substance: CLOBETASOL PROPIONATE
     Indication: Rash
     Dosage: TWICE PER DAY AS NEEDED, USE 2 WEEKS (UP TO 4 WEEKS ON NAILS), THEN BREAK
     Route: 061
  32. VIBRAMYCIN [Concomitant]
     Active Substance: DOXYCYCLINE
     Indication: Product used for unknown indication
     Dosage: 100 MG, TAKE 1 CAPSULE (100 MG TOTAL) BY MOUTH TWICE DAILY
     Route: 048
  33. EFUDEX [Concomitant]
     Active Substance: FLUOROURACIL
     Indication: Skin lesion
     Dosage: 5 % CREAM, APPLY TO LESIONS BID FOR 9 WEEKS
     Route: 061
  34. NEURONTIN [Concomitant]
     Active Substance: GABAPENTIN
     Indication: Product used for unknown indication
     Dosage: TAKE 1 CAPSULE (300 MG TOTAL) BY MOUTH EVERY NIGHT
     Route: 048
  35. GARLIC [Concomitant]
     Active Substance: GARLIC
     Indication: Supplementation therapy
     Dosage: TAKE 1 CAPSULE BY MOUTH 2 TIMES A WEEK ; PATIENT REPORTS ROTATING THIS WITH VITAMIN E EVERY OTHER...
     Route: 048
  36. HEPFLUSH-10 [Concomitant]
     Indication: Thrombosis prophylaxis
     Dosage: INJECT 3 ML AS DIRECTED PER INSTRUCTIONS. FLUSH IV CATHETER WITH 3-5ML OF 10 UNITS/ML? HEPARIN DA...
     Route: 042
  37. CORTEF [Concomitant]
     Active Substance: HYDROCORTISONE
     Indication: Adrenal insufficiency
     Dosage: TAKE 20 MG AT 8AM AND 10 MG EARLY AFTERNOON DAILY
     Route: 048
  38. SODIUM CHLORIDE [Concomitant]
     Active Substance: SODIUM CHLORIDE
     Indication: Erythema
     Dosage: INFUSE 10 ML INTO A VENOUS CATHETER PER INSTRUCTIONS. FLUSH IV CATHETER WITH 10-20ML? 0.9% SODIUM...
     Route: 042
  39. K-DUR [Concomitant]
     Active Substance: POTASSIUM CHLORIDE
     Indication: Product used for unknown indication
     Dosage: TAKE 2 TABLETS (40 MEQ TOTAL) BY MOUTH ONCE A DAY FOR 30 DAYS?20 MEQ ORAL TAB SUST.REL. PARTICLE/...
     Route: 048
  40. ZOLOFT [Concomitant]
     Active Substance: SERTRALINE HYDROCHLORIDE
     Indication: Depression
     Dosage: TAKE 1 TABLET (50 MG TOTAL) BY MOUTH ONCE A DAY
     Route: 048
  41. BACTRIM DS [Concomitant]
     Active Substance: SULFAMETHOXAZOLE\TRIMETHOPRIM
     Indication: Infection
     Dosage: 160-800 MG PER TABLET?10 MG/KG/DAY IN D5W INFUSION?HOLD UNTIL INSTRUCTED TO RESUME PER INFECTIOUS...
  42. SULFAMETHOXAZOLE AND TRIMETHOPRIM [Concomitant]
     Active Substance: SULFAMETHOXAZOLE\TRIMETHOPRIM
     Indication: Infection
     Dosage: INFUSE 1,600 MG INTO A VENOUS CATHETER EVERY 12 HOURS. BACTRIM 1600MG/320MG? IN D5W OVER 90 MINUT...
  43. VITAMIN E [Concomitant]
     Active Substance: .ALPHA.-TOCOPHEROL
     Indication: Vitamin E deficiency
     Dosage: TAKE 1 CAPSULE (100 UNITS TOTAL) BY MOUTH 2 TIMES A WEEK
     Route: 048
  44. VFEND [Concomitant]
     Active Substance: VORICONAZOLE
     Indication: Fungal infection
     Dosage: TAKE 1 TABLET (200 MG TOTAL) BY MOUTH TWICE DAILY IN MORNING AND? EVENING.
     Route: 048
  45. ISONIAZID [Concomitant]
     Active Substance: ISONIAZID
     Indication: Product used for unknown indication
  46. KLONOPIN [Concomitant]
     Active Substance: CLONAZEPAM
     Indication: Sleep disorder
     Dosage: FORM STRENGTH WAS 0.5 MILLIGRAM?TAKE 1 TAB (0.5 MG TOTAL) BY MOUTH EVERY NIGHT AS NEEDED
     Route: 048
  47. KLONOPIN [Concomitant]
     Active Substance: CLONAZEPAM
     Indication: Sleep disorder
     Dosage: TAKE 2 MG BY MOUTH EVERY NIGHT INDICATIONS?FORM STRENGTH WAS 2 MILLIGRAM
     Route: 048
  48. FML FORTE [Concomitant]
     Active Substance: FLUOROMETHOLONE
     Indication: Product used for unknown indication
     Dosage: 0.1 % OPHTHALMIC DROPS, SUSPENSION?INSTILL 1 DROP INTO BOTH EYES TWICE DAILY
     Route: 047
  49. LEVAQUIN [Concomitant]
     Active Substance: LEVOFLOXACIN
     Indication: Skin infection
     Dosage: TAKE 1 TABLET ONE TIME DAILY ?FORM STRENGTH 750 MG
     Route: 048

REACTIONS (6)
  - Postoperative wound infection [Recovered/Resolved]
  - Neoplasm [Not Recovered/Not Resolved]
  - Off label use [Unknown]
  - Dermatitis contact [Unknown]
  - Bacteraemia [Recovered/Resolved]
  - Device loosening [Recovered/Resolved]

NARRATIVE: CASE EVENT DATE: 20180101
